FAERS Safety Report 18987068 (Version 1)
Quarter: 2021Q1

REPORT INFORMATION
  Report Type: Report from Study
  Country: CN (occurrence: CN)
  Receive Date: 20210309
  Receipt Date: 20210309
  Transmission Date: 20210420
  Serious: Yes (Other)
  Sender: FDA-Public Use
  Company Number: CN-TAKEDA-2021TUS014827

PATIENT

DRUGS (1)
  1. IXAZOMIB [Suspect]
     Active Substance: IXAZOMIB
     Indication: PLASMA CELL MYELOMA
     Dosage: UNK
     Route: 065

REACTIONS (7)
  - Chorea [Unknown]
  - Neurological symptom [Unknown]
  - Myoclonus [Unknown]
  - Ataxia [Unknown]
  - Cognitive disorder [Unknown]
  - Dementia [Unknown]
  - Paraesthesia [Unknown]
